FAERS Safety Report 9656713 (Version 1)
Quarter: 2013Q4

REPORT INFORMATION
  Report Type: Spontaneous
  Country: AU (occurrence: None)
  Receive Date: 20131028
  Receipt Date: 20131028
  Transmission Date: 20140711
  Serious: Yes (Hospitalization)
  Sender: FDA-Public Use
  Company Number: 2013AGU002705

PATIENT
  Age: 65 Year
  Sex: Male

DRUGS (1)
  1. PONATINIB [Suspect]
     Indication: CHRONIC MYELOID LEUKAEMIA
     Dosage: UNK MG, UNK, ORAL
     Dates: start: 20110504

REACTIONS (3)
  - Colitis [None]
  - Arteriosclerosis coronary artery [None]
  - Carotid artery stenosis [None]
